FAERS Safety Report 5238803-6 (Version None)
Quarter: 2007Q1

REPORT INFORMATION
  Report Type: 
  Country: None (occurrence: None)
  Receive Date: 20070215
  Receipt Date: 20070205
  Transmission Date: 20070707
  Serious: Yes (Death, Life-Threatening, Hospitalization)
  Sender: FDA-Public Use
  Company Number: US-PFIZER INC-2006133114

PATIENT
  Sex: Male
  Weight: 136.1 kg

DRUGS (12)
  1. NORVASC [Interacting]
     Indication: HYPERTENSION
  2. DANTROLENE SODIUM [Interacting]
     Indication: NEUROLEPTIC MALIGNANT SYNDROME
     Route: 048
     Dates: start: 20060711, end: 20060712
  3. DANTROLENE SODIUM [Interacting]
     Route: 042
     Dates: start: 20060713, end: 20060714
  4. CLOZARIL [Suspect]
     Indication: SCHIZOAFFECTIVE DISORDER
  5. CLOZARIL [Suspect]
     Dates: start: 20060709, end: 20060710
  6. GLUCOPHAGE [Concomitant]
     Indication: DIABETES MELLITUS
  7. BROMOCRIPTINE MESYLATE [Concomitant]
     Route: 048
  8. BROMOCRIPTINE MESYLATE [Concomitant]
     Route: 048
  9. ATENOLOL [Concomitant]
  10. CLONAZEPAM [Concomitant]
  11. GLIPIZIDE [Concomitant]
  12. INSULIN [Concomitant]

REACTIONS (11)
  - APALLIC SYNDROME [None]
  - BLOOD PRESSURE INCREASED [None]
  - BRAIN DEATH [None]
  - CARDIO-RESPIRATORY ARREST [None]
  - DRUG INTERACTION [None]
  - ELECTROCARDIOGRAM ST-T CHANGE [None]
  - INFECTION [None]
  - NEUROLEPTIC MALIGNANT SYNDROME [None]
  - PNEUMONIA [None]
  - RESPIRATORY DEPRESSION [None]
  - VENTRICULAR FIBRILLATION [None]
